FAERS Safety Report 12578511 (Version 2)
Quarter: 2016Q3

REPORT INFORMATION
  Report Type: Spontaneous
  Country: US (occurrence: US)
  Receive Date: 20160721
  Receipt Date: 20160726
  Transmission Date: 20161109
  Serious: Yes (Other)
  Sender: FDA-Public Use
  Company Number: US-HORIZON-RAV-0139-2016

PATIENT
  Age: 12 Year
  Sex: Female

DRUGS (5)
  1. CITRULLINE [Concomitant]
     Active Substance: CITRULLINE
     Dosage: 10 G
  2. LEVOCARNITINE. [Concomitant]
     Active Substance: LEVOCARNITINE
  3. CYCLINEX [Concomitant]
     Dosage: 100 G
  4. PROTEIN [Concomitant]
     Active Substance: PROTEIN
     Dosage: 14 G
  5. RAVICTI [Suspect]
     Active Substance: GLYCEROL PHENYLBUTYRATE
     Indication: ORNITHINE TRANSCARBAMOYLASE DEFICIENCY
     Dosage: 7 ML DAILY
     Dates: start: 20130909

REACTIONS (1)
  - Cognitive disorder [Unknown]
